FAERS Safety Report 4264711-3 (Version None)
Quarter: 2004Q1

REPORT INFORMATION
  Report Type: 
  Country: None (occurrence: None)
  Receive Date: 20040102
  Receipt Date: 20031222
  Transmission Date: 20041129
  Serious: Yes (Death)
  Sender: FDA-Public Use
  Company Number: US_031299259

PATIENT
  Age: 83 Year
  Sex: Male

DRUGS (4)
  1. HEPARIN SODIUM [Suspect]
     Indication: ACUTE MYOCARDIAL INFARCTION
     Dates: start: 20031111, end: 20031111
  2. REOPRO [Concomitant]
  3. ANGIOMAX [Concomitant]
  4. PLAVIX [Concomitant]

REACTIONS (4)
  - ACUTE MYOCARDIAL INFARCTION [None]
  - CORONARY ARTERY OCCLUSION [None]
  - RENAL FAILURE [None]
  - THROMBOCYTOPENIA [None]
